FAERS Safety Report 9844745 (Version 1)
Quarter: 2014Q1

REPORT INFORMATION
  Report Type: Spontaneous
  Country: US (occurrence: None)
  Receive Date: 20140122
  Receipt Date: 20140122
  Transmission Date: 20141002
  Serious: Yes (Death)
  Sender: FDA-Public Use
  Company Number: B0958631A

PATIENT
  Age: 33 Year
  Sex: Female

DRUGS (6)
  1. METHADONE HYDROCHLORIDE [Suspect]
     Route: 048
  2. DIAZEPAM (FORMULATION UNKNOWN) (GENERIC) (DIAZEPAM) [Suspect]
     Route: 048
  3. BUPROPION HYDROCHLORIDE [Suspect]
     Route: 048
  4. AMITRIPTYLINE [Suspect]
     Route: 048
  5. VENLAFAXINE HYDROCHLORIDE (FORMULATION UNKNOWN) (GENERIC) (VENLAFAXINE HYDROCHLORIDE) [Suspect]
     Route: 048
  6. CITALOPRAM [Suspect]
     Route: 048

REACTIONS (2)
  - Completed suicide [None]
  - Exposure via ingestion [None]
